FAERS Safety Report 4860289-1 (Version None)
Quarter: 2005Q4

REPORT INFORMATION
  Report Type: 
  Country: None (occurrence: None)
  Receive Date: 20051215
  Receipt Date: 20051209
  Transmission Date: 20060501
  Serious: Yes (Other)
  Sender: FDA-Public Use
  Company Number: 2005166463

PATIENT
  Sex: Female

DRUGS (1)
  1. DRAMAMINE [Suspect]
     Dosage: ORAL
     Route: 048
     Dates: start: 20051209, end: 20051209

REACTIONS (2)
  - HALLUCINATION, VISUAL [None]
  - OVERDOSE [None]
